FAERS Safety Report 10726729 (Version 1)
Quarter: 2015Q1

REPORT INFORMATION
  Report Type: Spontaneous
  Country: US (occurrence: US)
  Receive Date: 20150121
  Receipt Date: 20150121
  Transmission Date: 20150721
  Serious: Yes (Other)
  Sender: FDA-Public Use
  Company Number: US-JNJFOC-20141113850

PATIENT
  Sex: Female
  Weight: 70.31 kg

DRUGS (12)
  1. LANOXIN [Concomitant]
     Active Substance: DIGOXIN
     Indication: HYPERTENSION
     Dosage: 100MG
     Route: 065
     Dates: start: 2003
  2. SPIRONOLACTONE. [Concomitant]
     Active Substance: SPIRONOLACTONE
     Dosage: SINCE BEFORE 2010
     Route: 065
  3. XARELTO [Suspect]
     Active Substance: RIVAROXABAN
     Indication: CEREBROVASCULAR ACCIDENT PROPHYLAXIS
     Dosage: TREATMENT STARTED APPROXIMATELY 2010 TO 2011
     Route: 048
  4. WARFARIN [Concomitant]
     Active Substance: WARFARIN
     Dosage: 100MG
     Route: 065
     Dates: start: 2007, end: 2012
  5. SPIRIVA [Concomitant]
     Active Substance: TIOTROPIUM BROMIDE MONOHYDRATE
     Indication: CHRONIC OBSTRUCTIVE PULMONARY DISEASE
     Dosage: 100MG
     Route: 045
     Dates: start: 2003
  6. DILTIAZEM [Concomitant]
     Active Substance: DILTIAZEM
     Indication: ATRIAL FIBRILLATION
     Dosage: 100MG
     Route: 065
     Dates: start: 2009
  7. XARELTO [Suspect]
     Active Substance: RIVAROXABAN
     Indication: ATRIAL FIBRILLATION
     Dosage: TREATMENT STARTED APPROXIMATELY 2010 TO 2011
     Route: 048
  8. LANOXIN [Concomitant]
     Active Substance: DIGOXIN
     Indication: ATRIAL FIBRILLATION
     Dosage: 100MG
     Route: 065
     Dates: start: 2003
  9. EPIPEN [Concomitant]
     Active Substance: EPINEPHRINE
     Indication: HYPERSENSITIVITY
     Dosage: 0.3ML/0.3MG AS NEEDED.
     Route: 030
  10. METOPROLOL [Concomitant]
     Active Substance: METOPROLOL
     Indication: CHRONIC OBSTRUCTIVE PULMONARY DISEASE
     Dosage: 100MG
     Route: 048
     Dates: start: 2003
  11. METOPROLOL [Concomitant]
     Active Substance: METOPROLOL
     Indication: HYPERTENSION
     Dosage: 100MG
     Route: 048
     Dates: start: 2003
  12. MAGNESIUM [Concomitant]
     Active Substance: MAGNESIUM
     Dosage: SINCE BEFORE 2010
     Route: 065

REACTIONS (3)
  - Haematuria [Recovered/Resolved]
  - Cystitis [Recovered/Resolved]
  - Urinary tract infection [Recovered/Resolved]

NARRATIVE: CASE EVENT DATE: 2013
